FAERS Safety Report 7545084-7 (Version None)
Quarter: 2011Q2

REPORT INFORMATION
  Report Type: 
  Country: None (occurrence: None)
  Receive Date: 20110610
  Receipt Date: 20110610
  Transmission Date: 20111010
  Serious: Yes (Hospitalization)
  Sender: FDA-Public Use
  Company Number: None

PATIENT
  Sex: Female
  Weight: 58.9676 kg

DRUGS (1)
  1. OCTAGAM [Suspect]
     Dosage: 2007 TO 2010 MONTHLY

REACTIONS (5)
  - PULMONARY EMBOLISM [None]
  - GENERAL PHYSICAL HEALTH DETERIORATION [None]
  - CARDIOMYOPATHY [None]
  - LOSS OF CONSCIOUSNESS [None]
  - DYSPNOEA [None]
